FAERS Safety Report 19111702 (Version 1)
Quarter: 2021Q2

REPORT INFORMATION
  Report Type: Report from Study
  Country: ID (occurrence: ID)
  Receive Date: 20210408
  Receipt Date: 20210408
  Transmission Date: 20210717
  Serious: Yes (Other)
  Sender: FDA-Public Use
  Company Number: ID-SEATTLE GENETICS-2020SGN02273

PATIENT
  Age: 22 Year
  Sex: Female

DRUGS (1)
  1. BRENTUXIMAB VEDOTIN [Suspect]
     Active Substance: BRENTUXIMAB VEDOTIN
     Indication: HODGKIN^S DISEASE REFRACTORY
     Dosage: 77.4 MILLIGRAM
     Route: 065
     Dates: start: 20200406

REACTIONS (5)
  - Hodgkin^s disease refractory [Unknown]
  - Drug ineffective [Unknown]
  - Vomiting [Recovered/Resolved]
  - Hypotension [Unknown]
  - Nausea [Unknown]

NARRATIVE: CASE EVENT DATE: 20200508
